FAERS Safety Report 7202473-8 (Version None)
Quarter: 2010Q4

REPORT INFORMATION
  Report Type: 
  Country: None (occurrence: None)
  Receive Date: 20101229
  Receipt Date: 20101220
  Transmission Date: 20110411
  Serious: Yes (Other)
  Sender: FDA-Public Use
  Company Number: B0690782A

PATIENT
  Age: 9 Year
  Sex: Male

DRUGS (3)
  1. ALKERAN [Suspect]
     Route: 042
  2. THIOTEPA [Suspect]
  3. CYCLOPHOSPHAMIDE [Suspect]

REACTIONS (4)
  - BONE SARCOMA [None]
  - JOINT SWELLING [None]
  - METASTASES TO LUNG [None]
  - PAIN IN EXTREMITY [None]
